FAERS Safety Report 20019892 (Version 4)
Quarter: 2022Q3

REPORT INFORMATION
  Report Type: Spontaneous
  Country: JP (occurrence: JP)
  Receive Date: 20211101
  Receipt Date: 20220812
  Transmission Date: 20221027
  Serious: Yes (Hospitalization, Other)
  Sender: FDA-Public Use
  Company Number: JP-dspharma-2021DSP016365AA

PATIENT
  Age: 38 Year
  Sex: Female
  Weight: 60 kg

DRUGS (27)
  1. LATUDA [Suspect]
     Active Substance: LURASIDONE HYDROCHLORIDE
     Indication: Schizoaffective disorder
     Dosage: 40 MG, QD
     Route: 048
     Dates: start: 20210702, end: 20210709
  2. LATUDA [Suspect]
     Active Substance: LURASIDONE HYDROCHLORIDE
     Dosage: 20 MG, QD
     Route: 048
     Dates: start: 20210710, end: 20210803
  3. LATUDA [Suspect]
     Active Substance: LURASIDONE HYDROCHLORIDE
     Dosage: 40 MG, QD
     Route: 048
     Dates: start: 20210804, end: 20210817
  4. LATUDA [Suspect]
     Active Substance: LURASIDONE HYDROCHLORIDE
     Dosage: 20 MG, QD
     Route: 048
     Dates: start: 20210818, end: 20210831
  5. PEROSPIRONE HYDROCHLORIDE [Suspect]
     Active Substance: PEROSPIRONE HYDROCHLORIDE
     Indication: Schizophrenia
     Dosage: 8 MG, TID
     Route: 048
     Dates: end: 20170508
  6. BLONANSERIN [Suspect]
     Active Substance: BLONANSERIN
     Indication: Schizophrenia
     Dosage: 8 MG, QD
     Route: 048
     Dates: start: 20170510, end: 20170517
  7. BLONANSERIN [Suspect]
     Active Substance: BLONANSERIN
     Dosage: 8 MG, BID
     Route: 048
     Dates: start: 20170518, end: 20170524
  8. BLONANSERIN [Suspect]
     Active Substance: BLONANSERIN
     Dosage: 12 MG, BID
     Route: 048
     Dates: start: 20170525, end: 20171024
  9. BLONANSERIN [Suspect]
     Active Substance: BLONANSERIN
     Dosage: 8 MG, BID
     Route: 048
     Dates: start: 20171025, end: 20171219
  10. BLONANSERIN [Suspect]
     Active Substance: BLONANSERIN
     Dosage: 12 MG, BID
     Route: 048
     Dates: start: 20171220, end: 20180313
  11. BLONANSERIN [Suspect]
     Active Substance: BLONANSERIN
     Dosage: 8 MG, BID
     Route: 048
     Dates: start: 20180314, end: 20180424
  12. BLONANSERIN [Suspect]
     Active Substance: BLONANSERIN
     Dosage: 4 MG, BID
     Route: 048
     Dates: start: 20180425, end: 20180828
  13. BLONANSERIN [Suspect]
     Active Substance: BLONANSERIN
     Dosage: 8 MG, BID
     Route: 048
     Dates: start: 20180829, end: 20200827
  14. AKINETON [Suspect]
     Active Substance: BIPERIDEN HYDROCHLORIDE
     Indication: Schizophrenia
     Dosage: 1 MG, QD
     Route: 048
     Dates: start: 20171004, end: 20180130
  15. AKINETON [Suspect]
     Active Substance: BIPERIDEN HYDROCHLORIDE
     Dosage: 1 MG, TID
     Route: 048
     Dates: start: 20180131, end: 20180522
  16. AKINETON [Suspect]
     Active Substance: BIPERIDEN HYDROCHLORIDE
     Dosage: 1 MG, QD
     Route: 048
     Dates: start: 20180523, end: 20180605
  17. BLONANSERIN [Suspect]
     Active Substance: BLONANSERIN
     Indication: Schizoaffective disorder
     Dosage: 80 MG, QD
     Route: 062
     Dates: start: 20200828, end: 20210929
  18. RISPERIDONE [Suspect]
     Active Substance: RISPERIDONE
     Indication: Schizophrenia
     Dosage: 12 MG, QD
     Route: 065
  19. OLANZAPINE [Suspect]
     Active Substance: OLANZAPINE
     Indication: Schizophrenia
     Dosage: 20 MG, QD
     Route: 065
  20. PAROXETINE HYDROCHLORIDE [Suspect]
     Active Substance: PAROXETINE HYDROCHLORIDE
     Indication: Schizophrenia
     Dosage: 40 MG, QD
     Route: 048
  21. ETIZOLAM [Suspect]
     Active Substance: ETIZOLAM
     Indication: Schizophrenia
     Dosage: UNK UNK, AS NECESSARY
     Route: 048
  22. RIVOTRIL [Concomitant]
     Active Substance: CLONAZEPAM
     Indication: Schizoaffective disorder
     Dosage: 0.5 MG, QD
     Route: 048
  23. LAMOTRIGINE [Concomitant]
     Active Substance: LAMOTRIGINE
     Indication: Schizoaffective disorder
     Dosage: 100 MG, QD
     Route: 048
  24. LITHIUM CARBONATE [Concomitant]
     Active Substance: LITHIUM CARBONATE
     Indication: Schizoaffective disorder
     Dosage: 200 MG, BID
     Route: 048
  25. BELSOMRA [Concomitant]
     Active Substance: SUVOREXANT
     Indication: Schizoaffective disorder
     Dosage: 15 MG, QD
     Route: 048
  26. BISOPROLOL FUMARATE [Concomitant]
     Active Substance: BISOPROLOL FUMARATE
     Indication: Cardiac failure chronic
     Dosage: 1.25 MG, QD
     Route: 048
  27. FERROUS SULFATE [Concomitant]
     Active Substance: FERROUS SULFATE
     Indication: Anaemia
     Dosage: 105 MG, QD,3 TIMES A WEEK
     Route: 048

REACTIONS (12)
  - Hallucination, auditory [Recovering/Resolving]
  - Genital haemorrhage [Not Recovered/Not Resolved]
  - Hallucination, auditory [Unknown]
  - Hyperprolactinaemia [Unknown]
  - Urinary incontinence [Recovered/Resolved]
  - Akathisia [Recovered/Resolved]
  - Akathisia [Recovering/Resolving]
  - Tremor [Recovering/Resolving]
  - Panic reaction [Recovering/Resolving]
  - Hyperventilation [Recovering/Resolving]
  - Somnolence [Recovered/Resolved]
  - Product use in unapproved indication [Unknown]

NARRATIVE: CASE EVENT DATE: 20170401
